FAERS Safety Report 6546343-7 (Version None)
Quarter: 2010Q1

REPORT INFORMATION
  Report Type: 
  Country: None (occurrence: None)
  Receive Date: 20100119
  Receipt Date: 20100104
  Transmission Date: 20100710
  Serious: Yes (Hospitalization, Other)
  Sender: FDA-Public Use
  Company Number: 2009AC000449

PATIENT
  Age: 40 Year
  Sex: Male

DRUGS (14)
  1. DIGOXIN [Suspect]
     Dosage: PO
     Route: 048
     Dates: start: 20030101
  2. TOPROL-XL [Concomitant]
  3. DEMADEX [Concomitant]
  4. POTASSIUM CHLORIDE [Concomitant]
  5. ACCUPRIL [Concomitant]
  6. HEPARIN [Concomitant]
  7. *FOLTX [Concomitant]
  8. ZOCOR [Concomitant]
  9. LASIX [Concomitant]
  10. ZANTAC [Concomitant]
  11. PLAVIX [Concomitant]
  12. COREG [Concomitant]
  13. ALTACE [Concomitant]
  14. ASPIRIN [Concomitant]

REACTIONS (18)
  - ATRIAL FIBRILLATION [None]
  - ATRIAL FLUTTER [None]
  - BLOOD URINE PRESENT [None]
  - CORONARY ARTERY DISEASE [None]
  - DYSPNOEA [None]
  - ECONOMIC PROBLEM [None]
  - ESSENTIAL HYPERTENSION [None]
  - HEART RATE IRREGULAR [None]
  - HYPERHIDROSIS [None]
  - HYPOAESTHESIA [None]
  - INTERNATIONAL NORMALISED RATIO INCREASED [None]
  - ISCHAEMIC CARDIOMYOPATHY [None]
  - MULTIPLE INJURIES [None]
  - MYOCARDIAL INFARCTION [None]
  - MYOGLOBIN BLOOD INCREASED [None]
  - RENAL IMPAIRMENT [None]
  - SURGERY [None]
  - UNEVALUABLE EVENT [None]
